FAERS Safety Report 9076819 (Version 3)
Quarter: 2013Q1

REPORT INFORMATION
  Report Type: Spontaneous
  Country: JP (occurrence: JP)
  Receive Date: 20130130
  Receipt Date: 20130226
  Transmission Date: 20140127
  Serious: No
  Sender: FDA-Public Use
  Company Number: JP-009507513-1301JPN012962

PATIENT
  Age: 67 Year
  Sex: Female
  Weight: 54 kg

DRUGS (13)
  1. PEGINTRON [Suspect]
     Indication: CHRONIC HEPATITIS C
     Dosage: 1.5 MICROGRAM PER KILOGRAM,QW DAILY DOSE UNKNOWN
     Route: 058
     Dates: start: 20121031
  2. PEGINTRON [Suspect]
     Dosage: 1 MICROGRAM PER KILOGRAM,QW, DAILY DOSE UNKNOWN
     Route: 058
     Dates: start: 20121107
  3. REBETOL [Suspect]
     Indication: CHRONIC HEPATITIS C
     Dosage: 600 MG, QD
     Route: 048
     Dates: start: 20121031, end: 20121113
  4. REBETOL [Suspect]
     Dosage: 200 MG, QD
     Route: 048
     Dates: start: 20121114
  5. TELAVIC [Suspect]
     Indication: CHRONIC HEPATITIS C
     Dosage: 1500 MG, QD
     Route: 048
     Dates: start: 20121031, end: 20130123
  6. URSO [Suspect]
     Indication: CHRONIC HEPATITIS C
     Dosage: 900 MG, QD
     Route: 048
  7. MYSLEE [Suspect]
     Dosage: 5 MG, QD, FORMULATION: POR
     Route: 048
     Dates: start: 20080521
  8. ALESION [Suspect]
     Indication: PROPHYLAXIS
     Dosage: 20 MG, QD
     Route: 048
     Dates: start: 20121031
  9. PARIET [Suspect]
     Indication: PROPHYLAXIS
     Dosage: 10 MG, QD
     Route: 048
     Dates: start: 20121031
  10. GASMOTIN [Suspect]
     Dosage: 15 MG, QD, FORMULATION: POR
     Route: 048
     Dates: start: 20121102
  11. ZYLORIC [Suspect]
     Dosage: 200 MG, QD
     Route: 048
     Dates: start: 20121106
  12. ALINAMIN F [Suspect]
     Dosage: 75 MG, QD
     Route: 048
     Dates: start: 20130123
  13. CALONAL [Suspect]
     Dosage: 300 MG, FORMULATION: POR
     Route: 048

REACTIONS (1)
  - Eczema asteatotic [Recovering/Resolving]
